FAERS Safety Report 4595602-6 (Version None)
Quarter: 2005Q1

REPORT INFORMATION
  Report Type: 
  Country: None (occurrence: None)
  Receive Date: 20050224
  Receipt Date: 20050203
  Transmission Date: 20050727
  Serious: Yes (Hospitalization)
  Sender: FDA-Public Use
  Company Number: US_0502112519

PATIENT
  Age: 30 Year
  Sex: Female

DRUGS (2)
  1. ZYPREXA [Suspect]
     Dosage: 40 MG
     Dates: start: 20050125
  2. TEGRETOL (CARBAMAZEPINE RIVOPHARM) [Concomitant]

REACTIONS (1)
  - AGGRESSION [None]
